FAERS Safety Report 8793811 (Version 2)
Quarter: 2012Q4

REPORT INFORMATION
  Report Type: Report from Study
  Country: JP (occurrence: JP)
  Receive Date: 20120917
  Receipt Date: 20121120
  Transmission Date: 20130627
  Serious: Yes (Other)
  Sender: FDA-Public Use
  Company Number: JP-VERTEX PHARMACEUTICAL INC.-AE-2012-006845

PATIENT
  Age: 36 Year
  Sex: Female

DRUGS (10)
  1. VX-950 (TELAPREVIR) [Suspect]
     Indication: CHRONIC HEPATITIS C
     Dosage: 2250 mg, qd
     Route: 048
     Dates: start: 20120319, end: 20120323
  2. VX-950 (TELAPREVIR) [Suspect]
     Dosage: 1500 mg, qd
     Route: 048
     Dates: start: 20120324, end: 20120611
  3. REBETOL [Suspect]
     Indication: CHRONIC HEPATITIS C
     Dosage: 600 mg, qd
     Route: 048
     Dates: start: 20120319, end: 20120903
  4. PEGINTRON                          /01543001/ [Suspect]
     Indication: CHRONIC HEPATITIS C
     Dosage: 1.5 ?g/kg, qw
     Route: 058
     Dates: start: 20120319, end: 20120417
  5. PEGINTRON                          /01543001/ [Suspect]
     Dosage: 0.8 UNK, qw
     Route: 058
     Dates: start: 20120424, end: 20120509
  6. PEGINTRON                          /01543001/ [Suspect]
     Dosage: 1.5 UNK, qw
     Route: 058
     Dates: start: 20120515, end: 20120529
  7. PEGINTRON                          /01543001/ [Suspect]
     Dosage: 0.8 UNK, qw
     Route: 058
     Dates: start: 20120605, end: 20120619
  8. PEGINTRON                          /01543001/ [Suspect]
     Dosage: 1.5 UNK, qw
     Route: 058
     Dates: start: 20120626, end: 20120703
  9. PEGINTRON                          /01543001/ [Suspect]
     Dosage: 0.8 UNK, qw
     Route: 058
     Dates: start: 20120710, end: 20120807
  10. PEGINTRON                          /01543001/ [Suspect]
     Dosage: 1.5 UNK, qw
     Route: 058
     Dates: start: 20120814, end: 20120828

REACTIONS (1)
  - White blood cell count decreased [Recovered/Resolved]
